FAERS Safety Report 14280076 (Version 1)
Quarter: 2017Q4

REPORT INFORMATION
  Report Type: Spontaneous
  Country: US (occurrence: US)
  Receive Date: 20171212
  Receipt Date: 20171212
  Transmission Date: 20180321
  Serious: Yes (Hospitalization)
  Sender: FDA-Public Use
  Company Number: US-IMPAX LABORATORIES, INC-2017-IPXL-02898

PATIENT
  Age: 76 Year
  Sex: Female

DRUGS (2)
  1. RYTARY [Suspect]
     Active Substance: CARBIDOPA\LEVODOPA
     Indication: PRODUCT USED FOR UNKNOWN INDICATION
     Dosage: 36.75MG/145MG 1 CAPSULE 3 TIMES PER DAY
     Route: 048
  2. RYTARY [Suspect]
     Active Substance: CARBIDOPA\LEVODOPA
     Dosage: 23.75MG/95MG 1 CAPSULE 3 TIMES PER DAY
     Route: 048

REACTIONS (4)
  - Drug dispensing error [Unknown]
  - Intentional product use issue [Unknown]
  - Malaise [Unknown]
  - Knee operation [Unknown]
